FAERS Safety Report 6467675-7 (Version None)
Quarter: 2009Q4

REPORT INFORMATION
  Report Type: 
  Country: None (occurrence: None)
  Receive Date: 20091202
  Receipt Date: 20081114
  Transmission Date: 20100525
  Serious: No
  Sender: FDA-Public Use
  Company Number: US-AMGEN-KDL319156

PATIENT
  Sex: Female

DRUGS (2)
  1. ENBREL [Suspect]
     Indication: RHEUMATOID ARTHRITIS
     Route: 058
     Dates: start: 19990101
  2. METHOTREXATE [Concomitant]
     Route: 048
     Dates: start: 19990101

REACTIONS (6)
  - INJECTION SITE ERYTHEMA [None]
  - INJECTION SITE PAIN [None]
  - INJECTION SITE RASH [None]
  - RASH ERYTHEMATOUS [None]
  - RASH PRURITIC [None]
  - SECRETION DISCHARGE [None]
